FAERS Safety Report 6346971-8 (Version None)
Quarter: 2009Q3

REPORT INFORMATION
  Report Type: 
  Country: None (occurrence: None)
  Receive Date: 20090908
  Receipt Date: 20090908
  Transmission Date: 20100115
  Serious: Yes (Other)
  Sender: FDA-Public Use
  Company Number: None

PATIENT
  Sex: Male
  Weight: 81.6475 kg

DRUGS (2)
  1. AMPHETAMINE AND DEXTROAMPHETAMINE SALTS [Suspect]
     Indication: ATTENTION DEFICIT/HYPERACTIVITY DISORDER
     Dosage: 30 MG DAILY PO
     Route: 048
     Dates: start: 20060101, end: 20090826
  2. AMPHETAMINE AND DEXTROAMPHETAMINE SALTS [Suspect]
     Indication: ATTENTION DEFICIT/HYPERACTIVITY DISORDER
     Dosage: 30MG DAILY PO
     Route: 048
     Dates: start: 20090827, end: 20090905

REACTIONS (3)
  - CHEST PAIN [None]
  - HEART RATE INCREASED [None]
  - NIGHT SWEATS [None]
